FAERS Safety Report 10236870 (Version 1)
Quarter: 2014Q2

REPORT INFORMATION
  Report Type: Spontaneous
  Country: FR (occurrence: FR)
  Receive Date: 20140613
  Receipt Date: 20140613
  Transmission Date: 20141212
  Serious: Yes (Hospitalization)
  Sender: FDA-Public Use
  Company Number: FR-PFIZER INC-2014162123

PATIENT
  Age: 78 Year
  Sex: Male

DRUGS (5)
  1. EUPANTOL [Suspect]
     Dosage: UNK
     Route: 048
     Dates: start: 201312
  2. LASILIX [Suspect]
     Dosage: UNK
     Route: 048
     Dates: start: 201312
  3. KARDEGIC [Suspect]
     Dosage: UNK
     Route: 048
  4. ESOMEPRAZOLE [Concomitant]
     Dosage: UNK
  5. FORTIMEL [Concomitant]
     Dosage: UNK

REACTIONS (4)
  - Eczema [Recovering/Resolving]
  - Pulmonary embolism [Unknown]
  - Deep vein thrombosis [Unknown]
  - Rash [Not Recovered/Not Resolved]
